FAERS Safety Report 8896197 (Version 1)
Quarter: 2012Q4

REPORT INFORMATION
  Report Type: 
  Country: US (occurrence: US)
  Receive Date: 20121108
  Receipt Date: 20121108
  Transmission Date: 20130627
  Serious: Yes (Hospitalization)
  Sender: FDA-Public Use
  Company Number: PHEH2012US019583

PATIENT
  Sex: Male

DRUGS (1)
  1. EXJADE [Suspect]
     Indication: IRON OVERLOAD
     Dosage: 1500 mg, daily
     Route: 048
     Dates: start: 20120514

REACTIONS (4)
  - Splenic rupture [Unknown]
  - Skin ulcer [Unknown]
  - White blood cell count decreased [Unknown]
  - Red blood cell count decreased [Unknown]
